FAERS Safety Report 6535691-2 (Version None)
Quarter: 2010Q1

REPORT INFORMATION
  Report Type: 
  Country: None (occurrence: None)
  Receive Date: 20100113
  Receipt Date: 20100104
  Transmission Date: 20100710
  Serious: Yes (Other)
  Sender: FDA-Public Use
  Company Number: FR-ASTRAZENECA-2010SE00158

PATIENT
  Sex: Female

DRUGS (7)
  1. NEXIUM [Suspect]
     Indication: PROPHYLAXIS AGAINST GASTROINTESTINAL ULCER
     Route: 048
     Dates: start: 20091106, end: 20091202
  2. PLAVIX [Suspect]
     Indication: ISCHAEMIC CARDIOMYOPATHY
     Route: 048
     Dates: start: 20091106, end: 20091202
  3. LASILIX [Suspect]
     Route: 048
     Dates: start: 20091106, end: 20091202
  4. ZYLORIC [Suspect]
     Route: 048
     Dates: end: 20091202
  5. CRESTOR [Concomitant]
     Dates: start: 20091106
  6. KARDEGIC [Concomitant]
     Dates: start: 20091106
  7. CARDENSIEL [Concomitant]
     Dates: start: 20091106

REACTIONS (2)
  - LEUKOPENIA [None]
  - NEUTROPENIA [None]
